FAERS Safety Report 5092288-1 (Version None)
Quarter: 2006Q3

REPORT INFORMATION
  Report Type: 
  Country: None (occurrence: None)
  Receive Date: 20060825
  Receipt Date: 20060809
  Transmission Date: 20061208
  Serious: Yes (Hospitalization, Other)
  Sender: FDA-Public Use
  Company Number: US200608002159

PATIENT
  Sex: Female

DRUGS (3)
  1. HUMALOG [Suspect]
     Dosage: 20 U, DAILY (1/D)
  2. FORTEO [Suspect]
     Dosage: 20 UG, DAILY (1/D)
  3. FORTEO [Concomitant]

REACTIONS (4)
  - BLOOD GLUCOSE DECREASED [None]
  - DRUG DISPENSING ERROR [None]
  - PHARMACEUTICAL PRODUCT COMPLAINT [None]
  - WRONG DRUG ADMINISTERED [None]
